FAERS Safety Report 4614795-5 (Version None)
Quarter: 2005Q1

REPORT INFORMATION
  Report Type: 
  Country: None (occurrence: None)
  Receive Date: 20050322
  Receipt Date: 20050310
  Transmission Date: 20050727
  Serious: Yes (Hospitalization)
  Sender: FDA-Public Use
  Company Number: 200512177GDDC

PATIENT
  Age: 70 Year
  Sex: Male

DRUGS (8)
  1. CRAVIT [Suspect]
     Indication: CYSTITIS
     Dosage: DOSE: UNK
     Route: 048
     Dates: start: 20050222, end: 20050225
  2. AMARYL [Suspect]
     Dosage: DOSE: UNK
  3. LASIX [Suspect]
     Dosage: DOSE: UNK
  4. SOLANAX [Suspect]
     Dosage: DOSE: UNK
     Route: 048
  5. LENDORM [Suspect]
     Dosage: DOSE: UNK
     Route: 048
  6. HARNAL [Suspect]
     Dosage: DOSE: UNK
     Route: 048
  7. ALESION [Suspect]
     Dosage: DOSE: UNK
     Route: 048
  8. ACECOL [Suspect]
     Dosage: DOSE: UNK
     Route: 048

REACTIONS (3)
  - ECZEMA [None]
  - HYPOGLYCAEMIA [None]
  - RHABDOMYOLYSIS [None]
